FAERS Safety Report 7813739-2 (Version None)
Quarter: 2011Q4

REPORT INFORMATION
  Report Type: 
  Country: None (occurrence: None)
  Receive Date: 20111014
  Receipt Date: 20110930
  Transmission Date: 20120403
  Serious: Yes (Hospitalization)
  Sender: FDA-Public Use
  Company Number: US-BAYER-2011-082435

PATIENT
  Age: 39 Year
  Sex: Female
  Weight: 86.168 kg

DRUGS (3)
  1. KEFLEX [Concomitant]
     Dosage: 500 MG, UNK
     Route: 048
     Dates: start: 20091025
  2. MOTRIN [Concomitant]
     Route: 048
  3. YASMIN [Suspect]
     Indication: CONTRACEPTION
     Dosage: UNK
     Dates: start: 20081101, end: 20091001

REACTIONS (4)
  - PAIN [None]
  - DEEP VEIN THROMBOSIS [None]
  - INJURY [None]
  - PULMONARY EMBOLISM [None]
